FAERS Safety Report 5661505-9 (Version None)
Quarter: 2008Q1

REPORT INFORMATION
  Report Type: 
  Country: None (occurrence: None)
  Receive Date: 20080312
  Receipt Date: 20080226
  Transmission Date: 20080703
  Serious: Yes (Hospitalization)
  Sender: FDA-Public Use
  Company Number: FR-ROCHE-550261

PATIENT

DRUGS (6)
  1. PEG-INTERFERON ALFA 2A (RO 25-8310) [Suspect]
     Dosage: DOSING CAPTURED AS PER AIMS
     Route: 065
  2. GLEEVEC [Suspect]
     Route: 065
  3. 1 CONCOMITANT DRUG [Concomitant]
     Dosage: DRUG REPORTED AS AUCUN
  4. NEURONTIN [Concomitant]
  5. XANAX [Concomitant]
  6. PROFENID [Concomitant]

REACTIONS (1)
  - CERVICAL ROOT PAIN [None]
